FAERS Safety Report 6193034-0 (Version None)
Quarter: 2009Q2

REPORT INFORMATION
  Report Type: 
  Country: None (occurrence: None)
  Receive Date: 20090518
  Receipt Date: 20090225
  Transmission Date: 20091009
  Serious: No
  Sender: FDA-Public Use
  Company Number: US-TYCO HEALTHCARE/MALLINCKRODT-T200900619

PATIENT
  Age: 28 Year
  Sex: Female

DRUGS (2)
  1. METHADOSE DISPERSIBLE [Suspect]
     Dosage: ONE TAB, 3-4X/DAY
     Route: 048
     Dates: start: 20050101
  2. METHADOSE DISPERSIBLE [Suspect]
     Dosage: 150 MG, QD
     Route: 048

REACTIONS (2)
  - DRUG DEPENDENCE [None]
  - OFF LABEL USE [None]
